FAERS Safety Report 8530854-9 (Version None)
Quarter: 2012Q3

REPORT INFORMATION
  Report Type: 
  Country: None (occurrence: None)
  Receive Date: 20120723
  Receipt Date: 20120712
  Transmission Date: 20120928
  Serious: Yes (Hospitalization)
  Sender: FDA-Public Use
  Company Number: FR-VERTEX PHARMACEUTICALS INC.-000000000000001209

PATIENT
  Age: 70 Year
  Sex: Female

DRUGS (12)
  1. INCIVO [Suspect]
     Indication: HEPATITIS C
     Dosage: DOSAGE FORM: TABLET
     Route: 048
  2. IMURAN [Concomitant]
     Indication: AUTOIMMUNE HEPATITIS
     Dosage: DOSAGE FORM: UNSPECIFIED
     Route: 065
  3. CORTICOSTEROIDS [Concomitant]
     Indication: AUTOIMMUNE HEPATITIS
  4. LEVOTHYROXINE SODIUM [Concomitant]
  5. NEORECORMON [Concomitant]
  6. COPEGUS [Concomitant]
     Dosage: DOSAGE FORM: TABLET
     Route: 048
  7. PEGASYS [Concomitant]
     Indication: HEPATITIS C
     Route: 058
  8. DELURSAN [Concomitant]
     Dosage: DOSAGE FORM: UNSPECIFIED
     Route: 065
  9. COPEGUS [Concomitant]
     Indication: HEPATITIS C
     Dosage: DOSAGE FORM: TABLET, THEN DECREASED
     Route: 048
  10. NEORECORMON [Concomitant]
     Dosage: THEN INCREASED
  11. NEORECORMON [Concomitant]
  12. ACETAMINOPHEN [Concomitant]

REACTIONS (8)
  - ACUTE RESPIRATORY DISTRESS SYNDROME [None]
  - OEDEMA [None]
  - ASTHENIA [None]
  - VISUAL ACUITY REDUCED [None]
  - SEPTIC SHOCK [None]
  - HEPATIC ENCEPHALOPATHY [None]
  - PANCYTOPENIA [None]
  - HEPATIC CIRRHOSIS [None]
